FAERS Safety Report 7218336-8 (Version None)
Quarter: 2011Q1

REPORT INFORMATION
  Report Type: 
  Country: None (occurrence: None)
  Receive Date: 20110110
  Receipt Date: 20110106
  Transmission Date: 20110831
  Serious: Yes (Death)
  Sender: FDA-Public Use
  Company Number: US-CEPHALON-2011000109

PATIENT
  Sex: Female

DRUGS (3)
  1. FENTORA [Suspect]
     Indication: GASTROINTESTINAL DISORDER
     Route: 002
     Dates: start: 20080101
  2. FENTORA [Suspect]
     Indication: MYELOPATHY
  3. FENTORA [Suspect]
     Indication: INTERVERTEBRAL DISC DISORDER

REACTIONS (1)
  - DEATH [None]
